FAERS Safety Report 13445222 (Version 1)
Quarter: 2017Q2

REPORT INFORMATION
  Report Type: Spontaneous
  Country: FR (occurrence: FR)
  Receive Date: 20170414
  Receipt Date: 20170414
  Transmission Date: 20170830
  Serious: Yes (Other)
  Sender: FDA-Public Use
  Company Number: FR-PFIZER INC-2017159881

PATIENT
  Age: 80 Year
  Sex: Female

DRUGS (1)
  1. LYRICA [Suspect]
     Active Substance: PREGABALIN
     Indication: RESTLESS LEGS SYNDROME
     Dosage: 100 MG, 2X/DAY
     Dates: start: 2011

REACTIONS (4)
  - Age-related macular degeneration [Unknown]
  - Drug ineffective for unapproved indication [Unknown]
  - Visual acuity reduced [Unknown]
  - Pruritus [Unknown]

NARRATIVE: CASE EVENT DATE: 2011
